FAERS Safety Report 20761229 (Version 1)
Quarter: 2022Q2

REPORT INFORMATION
  Report Type: Report from Study
  Country: IT (occurrence: IT)
  Receive Date: 20220428
  Receipt Date: 20220428
  Transmission Date: 20220721
  Serious: Yes (Hospitalization)
  Sender: FDA-Public Use
  Company Number: None

PATIENT
  Age: 65 Year
  Sex: Male

DRUGS (4)
  1. CARBOPLATIN [Suspect]
     Active Substance: CARBOPLATIN
     Indication: Non-small cell lung cancer stage IV
     Dosage: FORM STRENGTH: 10 MG / ML, UNIT DOSE: 490 MG, FREQUENCY TIME: 1 CYCLICAL
     Route: 042
     Dates: start: 20220225, end: 20220225
  2. YERVOY [Suspect]
     Active Substance: IPILIMUMAB
     Indication: Non-small cell lung cancer stage IV
     Dosage: FORM STRENGTH 5 MG / ML, UNIT DOSE: 56 MG, FREQUENCY TIME- 1 CYCLICAL
     Route: 042
     Dates: start: 20220225, end: 20220225
  3. PACLITAXEL [Suspect]
     Active Substance: PACLITAXEL
     Indication: Non-small cell lung cancer stage IV
     Dosage: FREQUENCY TIME: 1 CYCLICAL, FORM STRENGTH: 6 MG / ML, UNIT DOSE: 280 MG
     Route: 042
     Dates: start: 20220225, end: 20220225
  4. OPDIVO [Suspect]
     Active Substance: NIVOLUMAB
     Indication: Non-small cell lung cancer stage IV
     Dosage: 360 MG, FREQUENCY TIME: 1 CYCLICAL
     Route: 042
     Dates: start: 20220225, end: 20220225

REACTIONS (4)
  - Pyrexia [Recovered/Resolved]
  - Campylobacter infection [Recovered/Resolved]
  - Febrile neutropenia [Recovered/Resolved]
  - Diarrhoea [Recovered/Resolved]

NARRATIVE: CASE EVENT DATE: 20220308
